FAERS Safety Report 8572788-X (Version None)
Quarter: 2012Q2

REPORT INFORMATION
  Report Type: 
  Country: None (occurrence: None)
  Receive Date: 20120423
  Receipt Date: 20100209
  Transmission Date: 20120825
  Serious: Yes (Hospitalization, Other)
  Sender: FDA-Public Use
  Company Number: PHEH2010US02289

PATIENT
  Age: 80 Year
  Sex: Male

DRUGS (2)
  1. CHEMOTHERAPEUTICS NOS (NO INGREDIENTS/SUBSTANCES) [Concomitant]
  2. EXJADE [Suspect]
     Indication: IRON OVERLOAD
     Dosage: 1250 MG DAILY, ORAL
     Route: 048

REACTIONS (2)
  - PLATELET COUNT DECREASED [None]
  - HAEMOGLOBIN DECREASED [None]
